FAERS Safety Report 5716607-5 (Version None)
Quarter: 2008Q2

REPORT INFORMATION
  Report Type: 
  Country: None (occurrence: None)
  Receive Date: 20080424
  Receipt Date: 20080417
  Transmission Date: 20081010
  Serious: Yes (Hospitalization)
  Sender: FDA-Public Use
  Company Number: US-ELI_LILLY_AND_COMPANY-US200804004594

PATIENT
  Sex: Female

DRUGS (5)
  1. HUMALOG MIX 75/25 [Suspect]
     Dosage: 55 U, EACH MORNING
     Dates: start: 20080401
  2. HUMALOG MIX 75/25 [Suspect]
     Dosage: 45 U, EACH EVENING AFTER DINNER
     Dates: start: 20080401
  3. HUMALOG [Suspect]
     Dates: end: 20080401
  4. LASIX [Concomitant]
  5. POTASSIUM CHLORIDE [Concomitant]

REACTIONS (10)
  - ERYTHEMA [None]
  - FALL [None]
  - HEAD INJURY [None]
  - INJECTION SITE PRURITUS [None]
  - OEDEMA PERIPHERAL [None]
  - PAIN IN EXTREMITY [None]
  - POST-TRAUMATIC HEADACHE [None]
  - PRURITUS [None]
  - PRURITUS GENERALISED [None]
  - STAPHYLOCOCCAL INFECTION [None]
